FAERS Safety Report 23037241 (Version 4)
Quarter: 2024Q1

REPORT INFORMATION
  Report Type: Spontaneous
  Country: US (occurrence: US)
  Receive Date: 20231006
  Receipt Date: 20240320
  Transmission Date: 20240410
  Serious: Yes (Hospitalization)
  Sender: FDA-Public Use
  Company Number: US-SA-SAC20231003001762

PATIENT
  Age: 27 Year
  Sex: Female

DRUGS (2)
  1. DUPIXENT [Suspect]
     Active Substance: DUPILUMAB
     Indication: Dermatitis atopic
     Dosage: UNK, 1X
     Dates: start: 202309, end: 202309
  2. DUPIXENT [Suspect]
     Active Substance: DUPILUMAB
     Dosage: 300 MG, QOW
     Route: 058
     Dates: start: 202309

REACTIONS (16)
  - Ocular discomfort [Unknown]
  - Ocular hyperaemia [Unknown]
  - Skin fissures [Unknown]
  - Skin irritation [Unknown]
  - Photophobia [Unknown]
  - Fatigue [Unknown]
  - Dry skin [Unknown]
  - Skin haemorrhage [Unknown]
  - Sleep disorder due to a general medical condition [Unknown]
  - Condition aggravated [Unknown]
  - Injection site pain [Unknown]
  - Skin exfoliation [Unknown]
  - Pruritus [Unknown]
  - Dermatitis atopic [Unknown]
  - Dry eye [Unknown]
  - Inappropriate schedule of product administration [Unknown]

NARRATIVE: CASE EVENT DATE: 20230101
